FAERS Safety Report 9301985 (Version 2)
Quarter: 2013Q4

REPORT INFORMATION
  Report Type: Spontaneous
  Country: DK (occurrence: DK)
  Receive Date: 20130521
  Receipt Date: 20131203
  Transmission Date: 20140711
  Serious: Yes (Hospitalization)
  Sender: FDA-Public Use
  Company Number: DK-B.I. PHARMACEUTICALS,INC./RIDGEFIELD-2013-SW-00258DB

PATIENT
  Age: 86 Year
  Sex: Male

DRUGS (3)
  1. TRAJENTA [Suspect]
     Indication: DIABETES MELLITUS
     Dosage: 5 MG
     Route: 048
     Dates: start: 20130320, end: 201304
  2. GALVUS [Suspect]
     Indication: DIABETES MELLITUS
     Dosage: 50 MG
     Route: 048
     Dates: start: 20130307, end: 201304
  3. SIMVASTATIN [Concomitant]
     Indication: HYPERCHOLESTEROLAEMIA
     Dates: start: 2011, end: 20130414

REACTIONS (2)
  - Pancreatitis acute [Not Recovered/Not Resolved]
  - Hepatitis acute [Not Recovered/Not Resolved]
